FAERS Safety Report 9493276 (Version 1)
Quarter: 2013Q3

REPORT INFORMATION
  Report Type: Spontaneous
  Country: BE (occurrence: BE)
  Receive Date: 20130902
  Receipt Date: 20130902
  Transmission Date: 20140515
  Serious: Yes (Hospitalization)
  Sender: FDA-Public Use
  Company Number: PHHY2013BE094815

PATIENT
  Sex: Female

DRUGS (10)
  1. TEGRETOL CR [Suspect]
     Indication: LHERMITTE^S SIGN
     Dosage: 200 MG, TID
     Route: 048
  2. ASAFLOW [Concomitant]
     Dosage: 80 MG, QD
     Route: 048
  3. FOLIC ACID [Concomitant]
     Dosage: 4 MG, QD
  4. OMEPRAZOLE [Concomitant]
     Dosage: 40 MG, QD
     Route: 048
  5. MOTILIUM//DOMPERIDONE [Concomitant]
     Dosage: 10 MG, TID
     Route: 065
  6. ZOLPIDEM [Concomitant]
     Dosage: 10 MG, QD
     Route: 048
  7. OXYCONTIN [Concomitant]
     Dosage: 10 MG, QD
     Route: 048
  8. DIAZEPAM [Concomitant]
     Dosage: 5 MG, BID
     Route: 048
  9. RIVOTRIL [Concomitant]
     Dosage: 5 TIMES DAILY
     Route: 048
  10. MYOLASTAN [Concomitant]
     Dosage: 50 MG, BID
     Route: 048

REACTIONS (3)
  - Grand mal convulsion [Recovering/Resolving]
  - Loss of consciousness [Recovering/Resolving]
  - Convulsion [Recovering/Resolving]
